FAERS Safety Report 10102248 (Version 1)
Quarter: 2014Q2

REPORT INFORMATION
  Report Type: Spontaneous
  Country: US (occurrence: US)
  Receive Date: 20140424
  Receipt Date: 20140424
  Transmission Date: 20141212
  Serious: No
  Sender: FDA-Public Use
  Company Number: US-PFIZER INC-2014110802

PATIENT
  Age: 81 Year
  Sex: Male
  Weight: 82.09 kg

DRUGS (1)
  1. SUTENT [Suspect]
     Indication: NEOPLASM MALIGNANT
     Dosage: 50 MG, QD FOR 28 DAYS
     Route: 048
     Dates: start: 20140311

REACTIONS (7)
  - Disease progression [Unknown]
  - Neoplasm malignant [Unknown]
  - Asthenia [Unknown]
  - Diarrhoea [Unknown]
  - Rhinorrhoea [Unknown]
  - Lacrimation increased [Unknown]
  - Swelling face [Unknown]
